FAERS Safety Report 21568539 (Version 4)
Quarter: 2024Q1

REPORT INFORMATION
  Report Type: Report from Study
  Country: US (occurrence: US)
  Receive Date: 20221108
  Receipt Date: 20240320
  Transmission Date: 20240410
  Serious: Yes (Hospitalization, Other)
  Sender: FDA-Public Use
  Company Number: US-GW PHARMA-2022-US-034412

PATIENT
  Sex: Male

DRUGS (23)
  1. EPIDIOLEX [Suspect]
     Active Substance: CANNABIDIOL
     Indication: Cerebral palsy
     Dosage: 2.8 MILLILITER, BID
     Route: 048
     Dates: start: 202105
  2. EPIDIOLEX [Suspect]
     Active Substance: CANNABIDIOL
     Dosage: 2.8 UNK
     Route: 048
  3. DEPAKOTE [Concomitant]
     Active Substance: DIVALPROEX SODIUM
  4. PEDIA-LAX (DOCUSATE SODIUM) [Concomitant]
     Active Substance: DOCUSATE SODIUM
  5. PHENOBARBITAL [Concomitant]
     Active Substance: PHENOBARBITAL
  6. SYMBICORT [Concomitant]
     Active Substance: BUDESONIDE\FORMOTEROL FUMARATE DIHYDRATE
  7. SODIUM CHLORIDE [Concomitant]
     Active Substance: SODIUM CHLORIDE
  8. ATROVENT [Concomitant]
     Active Substance: IPRATROPIUM BROMIDE
  9. VITAMINS [Concomitant]
     Active Substance: VITAMINS
  10. BACLOFEN [Concomitant]
     Active Substance: BACLOFEN
  11. ACETYL [Concomitant]
  12. MCT [Concomitant]
  13. CULTURELLE [Concomitant]
     Active Substance: LACTOBACILLUS RHAMNOSUS
  14. CLONAZEPAM [Concomitant]
     Active Substance: CLONAZEPAM
  15. CALCIUM [Concomitant]
     Active Substance: CALCIUM
  16. PREDNISONE [Concomitant]
     Active Substance: PREDNISONE
  17. AZITHROMYCIN [Concomitant]
     Active Substance: AZITHROMYCIN
  18. CLONIDINE HYDROCHLORIDE [Concomitant]
     Active Substance: CLONIDINE HYDROCHLORIDE
  19. ALBUTEROL SULFATE [Concomitant]
     Active Substance: ALBUTEROL SULFATE
  20. ONFI [Concomitant]
     Active Substance: CLOBAZAM
  21. SINGULAIR [Concomitant]
     Active Substance: MONTELUKAST SODIUM
  22. PROPRANOLOL HYDROCHLORIDE [Concomitant]
     Active Substance: PROPRANOLOL HYDROCHLORIDE
  23. KETO 200 [Concomitant]

REACTIONS (5)
  - Pneumonia [Unknown]
  - Rhinovirus infection [Unknown]
  - Chronic respiratory disease [Unknown]
  - Respiratory failure [Unknown]
  - Off label use [Unknown]
